FAERS Safety Report 17842352 (Version 1)
Quarter: 2020Q2

REPORT INFORMATION
  Report Type: Spontaneous
  Country: US (occurrence: US)
  Receive Date: 20200529
  Receipt Date: 20200529
  Transmission Date: 20200714
  Serious: Yes (Other)
  Sender: FDA-Public Use
  Company Number: US-NAPPMUNDI-USA-2020-0153684

PATIENT

DRUGS (1)
  1. OXYCONTIN [Suspect]
     Active Substance: OXYCODONE HYDROCHLORIDE
     Indication: PRODUCT USED FOR UNKNOWN INDICATION
     Dosage: UNK
     Route: 048
     Dates: start: 200707

REACTIONS (9)
  - Night sweats [Unknown]
  - Abdominal pain upper [Unknown]
  - Drug dependence [Not Recovered/Not Resolved]
  - Pancreatitis [Not Recovered/Not Resolved]
  - Influenza like illness [Unknown]
  - Drug withdrawal syndrome [Unknown]
  - Pain [Unknown]
  - Nausea [Unknown]
  - Diarrhoea [Unknown]
